FAERS Safety Report 11708534 (Version 2)
Quarter: 2015Q4

REPORT INFORMATION
  Report Type: Spontaneous
  Country: US (occurrence: US)
  Receive Date: 20151104
  Receipt Date: 20151110
  Transmission Date: 20160304
  Serious: No
  Sender: FDA-Public Use
  Company Number: US-ELI_LILLY_AND_COMPANY-US201012001768

PATIENT
  Age: 54 Year
  Sex: Female

DRUGS (3)
  1. FORTEO [Suspect]
     Active Substance: TERIPARATIDE
     Dosage: 20 UG, QD
     Route: 065
  2. FORTEO [Suspect]
     Active Substance: TERIPARATIDE
     Indication: OSTEOPOROSIS
     Dosage: 20 UG, QD
     Route: 065
     Dates: start: 201010
  3. FORTEO [Suspect]
     Active Substance: TERIPARATIDE
     Dosage: 20 UG, QD
     Route: 065

REACTIONS (23)
  - Ligament sprain [Unknown]
  - Injection site erythema [Unknown]
  - Pain in extremity [Unknown]
  - Fatigue [Not Recovered/Not Resolved]
  - Constipation [Unknown]
  - Dizziness [Unknown]
  - Pain [Unknown]
  - Arthralgia [Not Recovered/Not Resolved]
  - Asthenia [Unknown]
  - Bone pain [Unknown]
  - Injection site haemorrhage [Unknown]
  - Thyroid disorder [Unknown]
  - Blood calcium increased [Unknown]
  - Blood pressure decreased [Unknown]
  - Insomnia [Unknown]
  - Muscle spasms [Unknown]
  - Sleep disorder due to a general medical condition [Unknown]
  - Peripheral coldness [Unknown]
  - Injection site bruising [Unknown]
  - Hunger [Unknown]
  - Injection site swelling [Not Recovered/Not Resolved]
  - Nausea [Not Recovered/Not Resolved]
  - Injection site pruritus [Unknown]

NARRATIVE: CASE EVENT DATE: 20101205
